FAERS Safety Report 8590813-7 (Version None)
Quarter: 2012Q3

REPORT INFORMATION
  Report Type: 
  Country: None (occurrence: None)
  Receive Date: 20120813
  Receipt Date: 20120723
  Transmission Date: 20120928
  Serious: Yes (Hospitalization)
  Sender: FDA-Public Use
  Company Number: JP-009507513-2012SP032668

PATIENT

DRUGS (21)
  1. PEG-INTRON [Suspect]
     Indication: HEPATITIS C
     Dosage: 1.5MCG/KG/WEEK
     Route: 058
     Dates: start: 20120411, end: 20120425
  2. REBETOL [Suspect]
     Dosage: 400 MG, QD
     Route: 048
     Dates: start: 20120426, end: 20120427
  3. REBETOL [Suspect]
     Dosage: 200 MG, QD
     Route: 048
     Dates: start: 20120428, end: 20120429
  4. PEG-INTRON [Suspect]
     Dosage: 1.5MCG/KG/WEEK
     Route: 058
     Dates: start: 20120530
  5. TELAVIC [Suspect]
     Route: 048
     Dates: start: 20120419, end: 20120503
  6. DOGMATYL [Concomitant]
     Indication: DEPRESSION
     Dosage: 150 MG, QD
     Route: 048
     Dates: start: 20120501, end: 20120518
  7. REBETOL [Suspect]
     Indication: HEPATITIS C
     Dosage: 800 MG, QD
     Route: 048
     Dates: start: 20120411, end: 20120425
  8. ALLOPURINOL [Concomitant]
     Indication: HYPERURICAEMIA
     Route: 048
     Dates: start: 20120418
  9. PEG-INTRON [Suspect]
     Dosage: 1.5MCG/KG/WEEK
     Route: 058
     Dates: start: 20120510, end: 20120516
  10. TELAVIC [Suspect]
     Indication: HEPATITIS C
     Route: 048
     Dates: start: 20120411, end: 20120418
  11. REBETOL [Suspect]
     Dosage: 200MG,EVERY OTHER DAY
     Route: 048
     Dates: start: 20120430, end: 20120502
  12. REBETOL [Suspect]
     Dosage: 200-400, EVERY OTHER DAY
     Route: 048
     Dates: start: 20120613, end: 20120621
  13. ALLEGRA [Concomitant]
     Indication: ERYTHEMA
     Dosage: 120 MG, QD
     Route: 048
     Dates: start: 20120413, end: 20120427
  14. PEG-INTRON [Suspect]
     Dosage: 1.1MCG/KG/WEEK
     Route: 058
     Dates: start: 20120523, end: 20120523
  15. REBETOL [Suspect]
     Route: 048
     Dates: start: 20120515, end: 20120612
  16. REBETOL [Suspect]
     Dosage: 200/400/400
     Route: 048
     Dates: start: 20120622
  17. ANTIVIRAL (UNSPECIFIED) [Suspect]
     Dosage: 1500 MG, QD
     Route: 048
     Dates: start: 20120419, end: 20120503
  18. REBETOL [Suspect]
     Dosage: 200 MG, QD
     Route: 048
     Dates: start: 20120515
  19. ANTIVIRAL (UNSPECIFIED) [Suspect]
     Indication: HEPATITIS C
     Dosage: 2250 MG, QD
     Route: 048
     Dates: start: 20120411, end: 20120418
  20. DIFLAL [Concomitant]
     Indication: ERYTHEMA
     Dosage: UNK UNK, UNKNOWN
     Route: 061
     Dates: start: 20120413
  21. ARGAMATE JELLY [Concomitant]
     Indication: PRODUCT USED FOR UNKNOWN INDICATION
     Dosage: ARGAMATE JELLY
     Route: 048
     Dates: start: 20120419, end: 20120424

REACTIONS (4)
  - RENAL DISORDER [None]
  - ANAEMIA [None]
  - NAUSEA [None]
  - DECREASED APPETITE [None]
